FAERS Safety Report 10101758 (Version 1)
Quarter: 2014Q2

REPORT INFORMATION
  Report Type: Spontaneous
  Country: FR (occurrence: None)
  Receive Date: 20140422
  Receipt Date: 20140422
  Transmission Date: 20141212
  Serious: Yes (Life-Threatening, Hospitalization, Other)
  Sender: FDA-Public Use
  Company Number: 2014000113

PATIENT
  Age: 55 Year
  Sex: Female

DRUGS (5)
  1. ACEON (PERINDOPRIL ERBUMINE) TABLET, 2MG [Suspect]
     Indication: CARDIAC FAILURE
     Route: 048
     Dates: start: 20140206, end: 20140307
  2. PROCORALAN (IVABRADINE HYDROCHLORIDE) TABLET [Suspect]
     Indication: CARDIAC FAILURE
     Route: 048
     Dates: start: 20140206, end: 20140307
  3. SPIRONOLACTONE (SPIRONOLACTONE) [Suspect]
     Indication: CARDIAC FAILURE
     Route: 048
     Dates: start: 20140206, end: 20140307
  4. BUMETANIDE (BUMETANIDE) [Suspect]
     Indication: CARDIAC FAILURE
     Route: 048
     Dates: start: 20140206, end: 20140307
  5. BISOPROLOL (BISOPROLOL) [Suspect]
     Indication: CARDIAC FAILURE
     Route: 048
     Dates: start: 20140206, end: 20140307

REACTIONS (6)
  - Nausea [None]
  - Vomiting [None]
  - Renal failure acute [None]
  - Hyperkalaemia [None]
  - Hyponatraemia [None]
  - Food intolerance [None]
